FAERS Safety Report 18259763 (Version 4)
Quarter: 2021Q1

REPORT INFORMATION
  Report Type: Spontaneous
  Country: US (occurrence: US)
  Receive Date: 20200912
  Receipt Date: 20210113
  Transmission Date: 20210419
  Serious: Yes (Other)
  Sender: FDA-Public Use
  Company Number: NVSC2020US241079

PATIENT
  Age: 46 Year
  Sex: Female

DRUGS (4)
  1. SANDOSTATIN [Suspect]
     Active Substance: OCTREOTIDE ACETATE
  2. SANDOSTATIN [Suspect]
     Active Substance: OCTREOTIDE ACETATE
  3. SANDOSTATIN [Suspect]
     Active Substance: OCTREOTIDE ACETATE
     Indication: PRODUCT USED FOR UNKNOWN INDICATION
     Dosage: UNK
     Route: 065
  4. HUMIRA [Suspect]
     Active Substance: ADALIMUMAB
     Indication: CROHN^S DISEASE
     Dosage: UNK UNK, Q2W
     Route: 058
     Dates: start: 2019

REACTIONS (34)
  - Abdominal neoplasm [Not Recovered/Not Resolved]
  - Arthralgia [Recovering/Resolving]
  - Erythema [Unknown]
  - Lymphadenopathy [Not Recovered/Not Resolved]
  - Impaired quality of life [Not Recovered/Not Resolved]
  - COVID-19 [Unknown]
  - Rectal spasm [Unknown]
  - Intervertebral disc protrusion [Not Recovered/Not Resolved]
  - Eye ulcer [Not Recovered/Not Resolved]
  - Muscular weakness [Not Recovered/Not Resolved]
  - Frequent bowel movements [Not Recovered/Not Resolved]
  - Nervous system cyst [Not Recovered/Not Resolved]
  - Neck pain [Recovering/Resolving]
  - Spinal osteoarthritis [Not Recovered/Not Resolved]
  - Lung disorder [Unknown]
  - Fatigue [Recovering/Resolving]
  - Neuropathy peripheral [Not Recovered/Not Resolved]
  - Scan abdomen abnormal [Not Recovered/Not Resolved]
  - Hypophagia [Not Recovered/Not Resolved]
  - Asthenia [Unknown]
  - Weight decreased [Unknown]
  - Diarrhoea [Recovering/Resolving]
  - Haemorrhage [Unknown]
  - Back pain [Unknown]
  - Crohn^s disease [Recovering/Resolving]
  - Mouth ulceration [Not Recovered/Not Resolved]
  - Visual impairment [Not Recovered/Not Resolved]
  - Neuralgia [Not Recovered/Not Resolved]
  - Nipple pain [Unknown]
  - Flatulence [Not Recovered/Not Resolved]
  - Tongue haemorrhage [Not Recovered/Not Resolved]
  - Breast mass [Not Recovered/Not Resolved]
  - Oxygen saturation abnormal [Unknown]
  - Illness [Unknown]

NARRATIVE: CASE EVENT DATE: 201911
